FAERS Safety Report 13292868 (Version 1)
Quarter: 2017Q1

REPORT INFORMATION
  Report Type: Spontaneous
  Country: DE (occurrence: DE)
  Receive Date: 20170303
  Receipt Date: 20170303
  Transmission Date: 20170428
  Serious: Yes (Hospitalization, Other)
  Sender: FDA-Public Use
  Company Number: DE-009507513-1702DEU011068

PATIENT
  Age: 29 Year
  Sex: Male

DRUGS (1)
  1. PROPECIA [Suspect]
     Active Substance: FINASTERIDE
     Indication: ALOPECIA
     Dosage: UNK, UNKNOWN
     Route: 048
     Dates: start: 2001, end: 2001

REACTIONS (6)
  - Loss of consciousness [Not Recovered/Not Resolved]
  - Panic attack [Recovered/Resolved]
  - Sexual dysfunction [Not Recovered/Not Resolved]
  - Exercise tolerance increased [Not Recovered/Not Resolved]
  - Fatigue [Not Recovered/Not Resolved]
  - Loss of libido [Not Recovered/Not Resolved]

NARRATIVE: CASE EVENT DATE: 2001
